FAERS Safety Report 7699509-7 (Version None)
Quarter: 2011Q3

REPORT INFORMATION
  Report Type: 
  Country: None (occurrence: None)
  Receive Date: 20110820
  Receipt Date: 20110518
  Transmission Date: 20111222
  Serious: No
  Sender: FDA-Public Use
  Company Number: US-ALLERGAN-1106840US

PATIENT
  Sex: Female

DRUGS (4)
  1. ZOCOR [Concomitant]
     Indication: PRODUCT USED FOR UNKNOWN INDICATION
  2. SYNTHROID [Concomitant]
     Indication: PRODUCT USED FOR UNKNOWN INDICATION
  3. SANCTURA XR [Suspect]
     Indication: HYPERTONIC BLADDER
     Dosage: 60 MG, QD
     Route: 048
     Dates: start: 20110201
  4. HORMONES AND RELATED AGENTS [Concomitant]
     Indication: PRODUCT USED FOR UNKNOWN INDICATION

REACTIONS (3)
  - POLLAKIURIA [None]
  - VISION BLURRED [None]
  - CONSTIPATION [None]
